FAERS Safety Report 20468465 (Version 2)
Quarter: 2022Q1

REPORT INFORMATION
  Report Type: Report from Study
  Country: MX (occurrence: MX)
  Receive Date: 20220214
  Receipt Date: 20220301
  Transmission Date: 20220424
  Serious: Yes (Other)
  Sender: FDA-Public Use
  Company Number: MX-SA-SAC20220209001360

PATIENT
  Age: 54 Year
  Sex: Female

DRUGS (1)
  1. INSULIN GLARGINE [Suspect]
     Active Substance: INSULIN GLARGINE
     Indication: Product used for unknown indication
     Dosage: 24 U
     Route: 058
     Dates: start: 202110

REACTIONS (9)
  - Neuropathy peripheral [Unknown]
  - Hyperglycaemia [Unknown]
  - Feeling abnormal [Unknown]
  - Unhealthy diet [Unknown]
  - Burning sensation [Unknown]
  - Pain [Unknown]
  - Hypoaesthesia [Unknown]
  - Temperature difference of extremities [Unknown]
  - Blood glucose increased [Unknown]

NARRATIVE: CASE EVENT DATE: 20220128
